FAERS Safety Report 9579612 (Version 2)
Quarter: 2013Q4

REPORT INFORMATION
  Report Type: Spontaneous
  Country: JP (occurrence: JP)
  Receive Date: 20131001
  Receipt Date: 20131108
  Transmission Date: 20140711
  Serious: Yes (Hospitalization, Other)
  Sender: FDA-Public Use
  Company Number: JP-009507513-1309JPN014003

PATIENT
  Age: 38 Year
  Sex: Female

DRUGS (2)
  1. THERAPY UNSPECIFIED [Suspect]
     Route: 030
  2. GONADOTROPIN, CHORIONIC [Suspect]

REACTIONS (1)
  - Acute abdomen [Recovered/Resolved]
